FAERS Safety Report 22035309 (Version 1)
Quarter: 2023Q1

REPORT INFORMATION
  Report Type: Spontaneous
  Country: US (occurrence: None)
  Receive Date: 20230222
  Receipt Date: 20230222
  Transmission Date: 20230418
  Serious: Yes (Hospitalization)
  Sender: FDA-Public Use
  Company Number: None

PATIENT
  Sex: Male

DRUGS (5)
  1. HUMIRA [Suspect]
     Active Substance: ADALIMUMAB
     Indication: Psoriasis
     Dosage: OTHER QUANTITY : 40MG/0.4ML;?FREQUENCY : EVERY OTHER WEEK;?
     Route: 058
     Dates: start: 20210206
  2. HYDROCO/APAP TAB [Concomitant]
  3. ONDANSETRON TAB ODT [Concomitant]
  4. OXYCOD/APAP TAB [Concomitant]
  5. OXYCODONE TAB [Concomitant]

REACTIONS (1)
  - Surgery [None]
